FAERS Safety Report 5128184-0 (Version None)
Quarter: 2006Q4

REPORT INFORMATION
  Report Type: 
  Country: None (occurrence: None)
  Receive Date: 20061017
  Receipt Date: 20060911
  Transmission Date: 20070319
  Serious: Yes (Other)
  Sender: FDA-Public Use
  Company Number: US-SOLVAY-00206002988

PATIENT
  Age: 178 Month
  Sex: Female
  Weight: 51 kg

DRUGS (1)
  1. PROMETRIUM [Suspect]
     Indication: MENSTRUATION IRREGULAR
     Dosage: DAILY DOSE: 200 MILLIGRAM(S)
     Route: 048
     Dates: start: 20060401, end: 20060907

REACTIONS (2)
  - NEPHROLITHIASIS [None]
  - PANCREATITIS [None]
